FAERS Safety Report 12943386 (Version 1)
Quarter: 2016Q4

REPORT INFORMATION
  Report Type: Spontaneous
  Country: BR (occurrence: BR)
  Receive Date: 20161115
  Receipt Date: 20161115
  Transmission Date: 20170207
  Serious: Yes (Other)
  Sender: FDA-Public Use
  Company Number: BR-GLAXOSMITHKLINE-B0973046A

PATIENT
  Age: 74 Year
  Sex: Male
  Weight: 88 kg

DRUGS (6)
  1. AVODART [Suspect]
     Active Substance: DUTASTERIDE
     Indication: PRODUCT USED FOR UNKNOWN INDICATION
  2. ARTROLIVE [Concomitant]
     Active Substance: CHONDROITIN SULFATE (BOVINE)\GLUCOSAMINE SULFATE
  3. SOTALOL HYDROCHLORIDE. [Concomitant]
     Active Substance: SOTALOL HYDROCHLORIDE
  4. COMBODART [Suspect]
     Active Substance: DUTASTERIDE\TAMSULOSIN
     Indication: BENIGN PROSTATIC HYPERPLASIA
     Dosage: 1 DF, 1D
     Route: 048
  5. OLCADIL [Concomitant]
     Active Substance: CLOXAZOLAM
  6. ROSUVASTATIN CALCIUM. [Concomitant]
     Active Substance: ROSUVASTATIN CALCIUM
     Dosage: 10 MG, UNK

REACTIONS (8)
  - Gynaecomastia [Not Recovered/Not Resolved]
  - Prostate cancer [Unknown]
  - Urinary tract disorder [Not Recovered/Not Resolved]
  - Intestinal polyp [Recovered/Resolved]
  - Expired product administered [Recovered/Resolved]
  - Lung neoplasm [Recovered/Resolved]
  - Cough [Unknown]
  - Colonoscopy abnormal [Recovered/Resolved]

NARRATIVE: CASE EVENT DATE: 201406
